FAERS Safety Report 8610745-5 (Version None)
Quarter: 2012Q3

REPORT INFORMATION
  Report Type: 
  Country: None (occurrence: None)
  Receive Date: 20120808
  Receipt Date: 20120723
  Transmission Date: 20120928
  Serious: Yes (Hospitalization, Other)
  Sender: FDA-Public Use
  Company Number: ABR_00563_2012

PATIENT
  Age: 30 Year
  Sex: Female

DRUGS (3)
  1. RITODRINE HYDROCHLORIDE [Concomitant]
  2. ERYTHROMYCIN [Suspect]
     Indication: PRODUCT USED FOR UNKNOWN INDICATION
     Dosage: 400 MG UNK
  3. CEFAZOLIN [Concomitant]

REACTIONS (11)
  - PREMATURE RUPTURE OF MEMBRANES [None]
  - SUTURE RUPTURE [None]
  - SEPSIS [None]
  - CHORIOAMNIONITIS [None]
  - PERITONITIS [None]
  - MATERNAL EXPOSURE TIMING UNSPECIFIED [None]
  - ESCHERICHIA INFECTION [None]
  - TACHYCARDIA [None]
  - CAESAREAN SECTION [None]
  - INCISION SITE COMPLICATION [None]
  - WOUND DEHISCENCE [None]
